FAERS Safety Report 22136464 (Version 1)
Quarter: 2023Q1

REPORT INFORMATION
  Report Type: Spontaneous
  Country: JP (occurrence: JP)
  Receive Date: 20230324
  Receipt Date: 20230324
  Transmission Date: 20230417
  Serious: Yes (Other)
  Sender: FDA-Public Use
  Company Number: JP-NShinyaku-EVA202207379Grunenthal

PATIENT
  Age: 78 Year
  Sex: Female

DRUGS (6)
  1. ACETAMINOPHEN\TRAMADOL [Suspect]
     Active Substance: ACETAMINOPHEN\TRAMADOL
     Indication: Compression fracture
     Dosage: UNK
     Route: 065
  2. ACETAMINOPHEN\TRAMADOL [Suspect]
     Active Substance: ACETAMINOPHEN\TRAMADOL
     Indication: Back pain
  3. PREGABALIN [Concomitant]
     Active Substance: PREGABALIN
     Indication: Compression fracture
     Dosage: UNK
     Route: 065
  4. PREGABALIN [Concomitant]
     Active Substance: PREGABALIN
     Indication: Back pain
  5. CELECOXIB [Concomitant]
     Active Substance: CELECOXIB
     Indication: Compression fracture
     Dosage: UNK
     Route: 065
  6. CELECOXIB [Concomitant]
     Active Substance: CELECOXIB
     Indication: Back pain

REACTIONS (1)
  - Tubulointerstitial nephritis [Recovering/Resolving]
